FAERS Safety Report 4784631-5 (Version None)
Quarter: 2005Q3

REPORT INFORMATION
  Report Type: 
  Country: None (occurrence: None)
  Receive Date: 20050928
  Receipt Date: 20050908
  Transmission Date: 20060218
  Serious: Yes (Death)
  Sender: FDA-Public Use
  Company Number: USA0509107166

PATIENT
  Age: 49 Year
  Sex: Female
  Weight: 66 kg

DRUGS (3)
  1. SYMBYAX [Suspect]
     Indication: DEPRESSION
     Dates: start: 20050819
  2. LORAZEPAM [Concomitant]
  3. OXYCODONE HCL [Concomitant]

REACTIONS (1)
  - COMPLETED SUICIDE [None]
